FAERS Safety Report 4698862-6 (Version None)
Quarter: 2005Q2

REPORT INFORMATION
  Report Type: 
  Country: None (occurrence: None)
  Receive Date: 20050623
  Receipt Date: 20050607
  Transmission Date: 20051028
  Serious: Yes (Life-Threatening)
  Sender: FDA-Public Use
  Company Number: 215092

PATIENT
  Age: 69 Year
  Sex: Male
  Weight: 70 kg

DRUGS (14)
  1. MABTHERA (RITUXIMAB) CONC FOR SOLUTION FOR INFUSION [Suspect]
     Indication: DIFFUSE LARGE B-CELL LYMPHOMA
     Dosage: 680 MG, Q14D, INTRAVENOUS
     Route: 042
     Dates: start: 20050426, end: 20050513
  2. CYCLOPHOSPHAMIDE [Suspect]
     Indication: DIFFUSE LARGE B-CELL LYMPHOMA
     Dosage: Q14D, INTRAVENOUS
     Route: 042
     Dates: start: 20050427, end: 20050513
  3. DOXORUBICIN HCL [Suspect]
     Indication: DIFFUSE LARGE B-CELL LYMPHOMA
     Dosage: Q14D, INTRAVENOUS
     Route: 042
     Dates: start: 20050427, end: 20050513
  4. VINCRISTINE [Suspect]
     Indication: DIFFUSE LARGE B-CELL LYMPHOMA
     Dosage: Q14D, INTRAVENOUS
     Route: 042
     Dates: start: 20050427, end: 20050513
  5. PREDNISONE [Suspect]
     Indication: DIFFUSE LARGE B-CELL LYMPHOMA
     Dosage: Q14D, INTRAVENOUS
     Route: 042
     Dates: start: 20050427, end: 20050513
  6. PANTOZOL (PANTOPRAZOLE) [Concomitant]
  7. FLUVASTATIN (FLUVASTATIN) [Concomitant]
  8. TORASEMID (TORSEMIDE) [Concomitant]
  9. METOPROLOL TARTRATE [Concomitant]
  10. CO-TRIMOXAZOL (TRIMETHOPRIM, SULFAMETHOXAZOLE) [Concomitant]
  11. AMPHOTERICIN B [Concomitant]
  12. CALCIUM (CALCIUM NOS) [Concomitant]
  13. ACICLOVIR (ACYCLOVIR) [Concomitant]
  14. ALLOPURINOL [Concomitant]

REACTIONS (4)
  - ANAEMIA [None]
  - GASTRIC ULCER HAEMORRHAGE [None]
  - HYPOTONIA [None]
  - TACHYCARDIA [None]
